FAERS Safety Report 9303346 (Version 2)
Quarter: 2013Q3

REPORT INFORMATION
  Report Type: Spontaneous
  Country: US (occurrence: US)
  Receive Date: 20130522
  Receipt Date: 20130705
  Transmission Date: 20140515
  Serious: Yes (Other)
  Sender: FDA-Public Use
  Company Number: US-PFIZER INC-2013153893

PATIENT
  Age: 52 Year
  Sex: Male

DRUGS (2)
  1. SOMAVERT [Suspect]
     Indication: ACROMEGALY
     Dosage: 15 MG, 1X/DAY
     Route: 058
  2. SOMAVERT [Suspect]
     Indication: GIGANTISM

REACTIONS (3)
  - Femoroacetabular impingement [Unknown]
  - Arthralgia [Unknown]
  - Pain [Unknown]
